FAERS Safety Report 5259701-8 (Version None)
Quarter: 2007Q1

REPORT INFORMATION
  Report Type: 
  Country: None (occurrence: None)
  Receive Date: 20070307
  Receipt Date: 20070307
  Transmission Date: 20070707
  Serious: Yes (Other)
  Sender: FDA-Public Use
  Company Number: None

PATIENT
  Age: 55 Year
  Sex: Female
  Weight: 74.8435 kg

DRUGS (1)
  1. PHENAZOPYRIDINE HCL TAB [Suspect]
     Indication: URINARY TRACT INFECTION
     Dosage: 2 TABLETS  3 TIMES/DAY PO
     Route: 048
     Dates: start: 20021001, end: 20021002

REACTIONS (4)
  - ARTHRALGIA [None]
  - FATIGUE [None]
  - MALAISE [None]
  - PYREXIA [None]
